FAERS Safety Report 4880293-7 (Version None)
Quarter: 2006Q1

REPORT INFORMATION
  Report Type: 
  Country: None (occurrence: None)
  Receive Date: 20060111
  Receipt Date: 20051229
  Transmission Date: 20060701
  Serious: Yes (Other)
  Sender: FDA-Public Use
  Company Number: 2006000999

PATIENT
  Age: 39 Year
  Sex: Male
  Weight: 68.0396 kg

DRUGS (2)
  1. DETROL LA [Suspect]
     Indication: HYPERTONIC BLADDER
     Dosage: 4 MG (4 MG, 1 IN 1 D), ORAL
     Route: 048
     Dates: start: 19970101
  2. ALL OTHER THERAPEUTIC PRODUCTS (ALL OTHER THERAPEUTIC PRODUCTS) [Concomitant]

REACTIONS (9)
  - ACCIDENT [None]
  - ARTHRITIS [None]
  - DEPRESSION [None]
  - DRY MOUTH [None]
  - MICTURITION URGENCY [None]
  - PROSTATE CANCER [None]
  - SCAR [None]
  - TESTICULAR DISORDER [None]
  - URINARY INCONTINENCE [None]
